FAERS Safety Report 6145491-3 (Version None)
Quarter: 2009Q2

REPORT INFORMATION
  Report Type: 
  Country: None (occurrence: None)
  Receive Date: 20090406
  Receipt Date: 20090325
  Transmission Date: 20091009
  Serious: Yes (Other)
  Sender: FDA-Public Use
  Company Number: US-PFIZER INC-2009155967

PATIENT
  Age: 54 Year
  Weight: 75 kg

DRUGS (13)
  1. DILANTIN [Suspect]
     Indication: CONVULSION
     Dosage: 30 MG, UNK
     Route: 048
     Dates: start: 20081208
  2. DILANTIN [Suspect]
     Dosage: 50 MG, UNK
     Route: 048
     Dates: start: 20081208
  3. LITHIUM [Concomitant]
     Dosage: 300 MG, 2X/DAY
  4. DOXYCYCLINE [Concomitant]
     Dosage: UNK MG, UNK
  5. ASPIRIN [Concomitant]
     Dosage: 81 MG, 1X/DAY
  6. DOCUSATE [Concomitant]
     Dosage: UNK
  7. TYLENOL [Concomitant]
     Dosage: UNK MG, UNK
  8. RISPERIDONE [Concomitant]
     Dosage: 5.5 MG, 2X/DAY
  9. LEVOTHYROXINE SODIUM [Concomitant]
     Dosage: UNK
  10. LORATADINE [Concomitant]
     Dosage: UNK
  11. POLYETHYLENE GLYCOL [Concomitant]
     Dosage: UNK
  12. VITAMIN D [Concomitant]
     Dosage: 400 IU, 2X/DAY
  13. OMEPRAZOLE [Concomitant]
     Dosage: UNK

REACTIONS (4)
  - ANTICONVULSANT DRUG LEVEL DECREASED [None]
  - ATAXIA [None]
  - BLOOD CREATININE INCREASED [None]
  - DRUG LEVEL INCREASED [None]
